FAERS Safety Report 6020413-4 (Version None)
Quarter: 2008Q4

REPORT INFORMATION
  Report Type: 
  Country: None (occurrence: None)
  Receive Date: 20081223
  Receipt Date: 20081223
  Transmission Date: 20090506
  Serious: Yes (Hospitalization)
  Sender: FDA-Public Use
  Company Number: None

PATIENT
  Age: 63 Year
  Sex: Male
  Weight: 81.6 kg

DRUGS (1)
  1. OLANZAPINE [Suspect]
     Indication: SCHIZOPHRENIA
     Dosage: 10 MG EVERY DAY PO
     Route: 048
     Dates: start: 20081010, end: 20081201

REACTIONS (6)
  - COUGH [None]
  - GAIT DISTURBANCE [None]
  - HYPERGLYCAEMIC HYPEROSMOLAR NONKETOTIC SYNDROME [None]
  - LETHARGY [None]
  - MENTAL STATUS CHANGES [None]
  - VOMITING [None]
